FAERS Safety Report 9335814 (Version 1)
Quarter: 2013Q2

REPORT INFORMATION
  Report Type: Spontaneous
  Country: US (occurrence: US)
  Receive Date: 20130606
  Receipt Date: 20130606
  Transmission Date: 20140414
  Serious: No
  Sender: FDA-Public Use
  Company Number: US-AMGEN-USASP2013026743

PATIENT
  Age: 62 Year
  Sex: Female

DRUGS (4)
  1. PROLIA [Suspect]
     Indication: OSTEOPOROSIS POSTMENOPAUSAL
  2. PERCOCET                           /00446701/ [Concomitant]
  3. TYLENOL                            /00020001/ [Concomitant]
  4. IBUPROFEN [Concomitant]

REACTIONS (1)
  - Pain in extremity [Unknown]
